FAERS Safety Report 12048406 (Version 1)
Quarter: 2016Q1

REPORT INFORMATION
  Report Type: Spontaneous
  Country: US (occurrence: US)
  Receive Date: 20160208
  Receipt Date: 20160208
  Transmission Date: 20160526
  Serious: Yes (Death)
  Sender: FDA-Public Use
  Company Number: US-FOOD AND DRUG ADMINISTRATION-INS201601-000055

PATIENT
  Sex: Male

DRUGS (1)
  1. SUBSYS [Suspect]
     Active Substance: FENTANYL
     Indication: PAIN
     Route: 060
     Dates: start: 20151201, end: 20160125

REACTIONS (3)
  - Off label use [Unknown]
  - Death [Fatal]
  - Malignant neoplasm progression [None]
